FAERS Safety Report 7436874-X (Version None)
Quarter: 2011Q2

REPORT INFORMATION
  Report Type: 
  Country: None (occurrence: None)
  Receive Date: 20110426
  Receipt Date: 20101130
  Transmission Date: 20111010
  Serious: No
  Sender: FDA-Public Use
  Company Number: US-BAYER-2010-003888

PATIENT
  Age: 28 Year
  Sex: Female
  Weight: 58.503 kg

DRUGS (2)
  1. MIRENA [Suspect]
     Dosage: UNK
     Dates: start: 20080611, end: 20080611
  2. MIRENA [Suspect]
     Indication: CONTRACEPTION
     Dosage: UNK
     Route: 015
     Dates: start: 20080611

REACTIONS (5)
  - DEVICE DISLOCATION [None]
  - DEVICE EXPULSION [None]
  - PREGNANCY WITH CONTRACEPTIVE DEVICE [None]
  - MENORRHAGIA [None]
  - WEIGHT DECREASED [None]
